FAERS Safety Report 13475839 (Version 1)
Quarter: 2017Q2

REPORT INFORMATION
  Report Type: Report from Study
  Country: US (occurrence: US)
  Receive Date: 20170425
  Receipt Date: 20170425
  Transmission Date: 20170830
  Serious: Yes (Hospitalization, Other)
  Sender: FDA-Public Use
  Company Number: US-UCBSA-2017015500

PATIENT
  Age: 27 Year
  Sex: Female
  Weight: 61 kg

DRUGS (31)
  1. PREDNISONE. [Concomitant]
     Active Substance: PREDNISONE
     Dosage: 5 MG, ONCE DAILY (QD)
     Route: 048
     Dates: start: 20131009, end: 20131015
  2. ZOFRAN [Concomitant]
     Active Substance: ONDANSETRON HYDROCHLORIDE
     Dosage: UNK 4 DAY
     Dates: start: 20140303, end: 20140307
  3. MORPHINE [Concomitant]
     Active Substance: MORPHINE
     Dosage: UNK, ONCE DAILY (QD)
     Route: 042
     Dates: start: 20131221, end: 20131224
  4. ZOFRAN [Concomitant]
     Active Substance: ONDANSETRON HYDROCHLORIDE
     Dosage: 4 MG, ONCE DAILY (QD)
     Route: 048
     Dates: start: 20131119, end: 20131223
  5. FLU [Concomitant]
     Active Substance: INFLUENZA VIRUS VACCINE
     Indication: PRODUCT USED FOR UNKNOWN INDICATION
     Dosage: 1 DF, (1 SHOT)
     Dates: start: 20131113, end: 20131113
  6. REGLAN [Concomitant]
     Active Substance: METOCLOPRAMIDE HYDROCHLORIDE
     Indication: NAUSEA
     Dosage: 10 MG, ONCE DAILY (QD)
     Route: 048
     Dates: start: 20131104, end: 20131118
  7. ZOFRAN [Concomitant]
     Active Substance: ONDANSETRON HYDROCHLORIDE
     Dosage: 4 MG, ONCE DAILY (QD)
     Route: 048
     Dates: start: 20140214, end: 20140214
  8. PRENATAL VITAMINS [Concomitant]
     Active Substance: VITAMINS
     Indication: PRODUCT USED FOR UNKNOWN INDICATION
     Dosage: UNK
     Dates: start: 20130904, end: 20140514
  9. PROBIOTICS NOS [Concomitant]
     Active Substance: PROBIOTICS NOS
     Indication: PRODUCT USED FOR UNKNOWN INDICATION
     Dosage: 1 PILL
     Dates: start: 20140425, end: 20140514
  10. TUMS [Concomitant]
     Active Substance: CALCIUM CARBONATE
     Indication: DYSPEPSIA
     Dosage: 2 DF, 4X/WEEK
     Dates: start: 20140131, end: 20140328
  11. MORPHINE [Concomitant]
     Active Substance: MORPHINE
     Dosage: UNK, ONCE DAILY (QD)
     Route: 042
     Dates: start: 20140201, end: 20140201
  12. PREDNISONE. [Concomitant]
     Active Substance: PREDNISONE
     Dosage: 25 MG, ONCE DAILY (QD)
     Route: 048
     Dates: start: 20130911, end: 20130917
  13. PREDNISONE. [Concomitant]
     Active Substance: PREDNISONE
     Dosage: 15 MG, ONCE DAILY (QD)
     Route: 048
     Dates: start: 20130925, end: 20131001
  14. ZOFRAN [Concomitant]
     Active Substance: ONDANSETRON HYDROCHLORIDE
     Dosage: UNK, ONCE DAILY (QD)
     Route: 042
     Dates: start: 20131221, end: 20131221
  15. TUMS [Concomitant]
     Active Substance: CALCIUM CARBONATE
     Dosage: 2 DF, ONCE DAILY (QD)
     Route: 048
     Dates: start: 20140329, end: 20140514
  16. CERTOLIZUMAB PEGOL RA [Suspect]
     Active Substance: CERTOLIZUMAB PEGOL
     Indication: CROHN^S DISEASE
     Dosage: 200 MG, 2X/MONTH
     Dates: start: 20110101, end: 20140514
  17. LORTAB [Concomitant]
     Active Substance: ACETAMINOPHEN\HYDROCODONE BITARTRATE
     Indication: PAIN
     Dosage: 3 ML, 6X/DAY AS NEEDED
     Route: 048
     Dates: start: 20140112, end: 20140328
  18. MORPHINE [Concomitant]
     Active Substance: MORPHINE
     Dosage: UNK, ONCE DAILY (QD)
     Route: 042
     Dates: start: 20140303, end: 20140308
  19. DIPHTHERIA VACCINE W/PERTUSSIS VACCINE/TETAN. [Concomitant]
     Indication: PRODUCT USED FOR UNKNOWN INDICATION
     Dosage: 1 DF, (1 SHOT)
     Dates: start: 20140325, end: 20140325
  20. MIRALAX [Concomitant]
     Active Substance: POLYETHYLENE GLYCOL 3350
     Indication: CONSTIPATION
     Dosage: 17 MG, ONCE DAILY (QD)
     Route: 048
     Dates: start: 20140212, end: 20140213
  21. PREDNISONE. [Concomitant]
     Active Substance: PREDNISONE
     Indication: INTESTINAL OBSTRUCTION
     Dosage: 30 MG, ONCE DAILY (QD)
     Route: 048
     Dates: start: 20130904, end: 20130910
  22. PREDNISONE. [Concomitant]
     Active Substance: PREDNISONE
     Dosage: 20 MG, ONCE DAILY (QD)
     Route: 048
     Dates: start: 20130918, end: 20130924
  23. PREDNISONE. [Concomitant]
     Active Substance: PREDNISONE
     Dosage: 10 MG, ONCE DAILY (QD)
     Route: 048
     Dates: start: 20131002, end: 20131008
  24. ZOFRAN [Concomitant]
     Active Substance: ONDANSETRON HYDROCHLORIDE
     Indication: NAUSEA
     Dosage: UNK, ONCE DAILY (QD)
     Route: 042
     Dates: start: 20130909, end: 20130912
  25. ZOFRAN [Concomitant]
     Active Substance: ONDANSETRON HYDROCHLORIDE
     Dosage: UNK, ONCE DAILY (QD)
     Route: 042
     Dates: start: 20140112, end: 20140112
  26. ZOFRAN [Concomitant]
     Active Substance: ONDANSETRON HYDROCHLORIDE
     Dosage: 8 MG, ONCE DAILY (QD)
     Route: 048
     Dates: start: 20140213, end: 20140213
  27. TACLONEX [Concomitant]
     Active Substance: BETAMETHASONE DIPROPIONATE\CALCIPOTRIENE\CALCIPOTRIENE HYDRATE
     Indication: PSORIASIS
     Dosage: UNK, 3X/WEEK
     Route: 061
     Dates: start: 20130904, end: 20140514
  28. CAFFEINE. [Concomitant]
     Active Substance: CAFFEINE
     Indication: PRODUCT USED FOR UNKNOWN INDICATION
     Dosage: UNK
     Route: 048
     Dates: start: 20130904, end: 20140514
  29. FLEXERIL [Concomitant]
     Active Substance: CYCLOBENZAPRINE HYDROCHLORIDE
     Indication: PAIN
     Dosage: 10 MG, UNK
     Route: 048
     Dates: start: 20140213, end: 20140214
  30. MORPHINE [Concomitant]
     Active Substance: MORPHINE
     Indication: PAIN
     Dosage: UNK, ONCE DAILY (QD)
     Route: 042
     Dates: start: 20130909, end: 20130912
  31. TYLENOL EXTRA STRENGTH [Concomitant]
     Active Substance: ACETAMINOPHEN
     Indication: PAIN
     Dosage: 1000 MG 1.5 WEEK
     Route: 048
     Dates: start: 20130904, end: 20140314

REACTIONS (5)
  - Premature delivery [Unknown]
  - Intestinal obstruction [Recovered/Resolved]
  - Respiratory tract infection [Recovered/Resolved]
  - Hyperthermia [Recovered/Resolved]
  - Pregnancy [Unknown]

NARRATIVE: CASE EVENT DATE: 2013
